FAERS Safety Report 4925889-9 (Version None)
Quarter: 2006Q1

REPORT INFORMATION
  Report Type: 
  Country: None (occurrence: None)
  Receive Date: 20060228
  Receipt Date: 20050411
  Transmission Date: 20060701
  Serious: No
  Sender: FDA-Public Use
  Company Number: US-GLAXOSMITHKLINE-A0553590A

PATIENT
  Age: 43 Year
  Sex: Female

DRUGS (5)
  1. LAMICTAL [Suspect]
     Indication: BIPOLAR DISORDER
     Dosage: 75MG PER DAY
     Route: 048
     Dates: start: 20050301
  2. CLONOPIN [Concomitant]
  3. QUININE SULFATE [Concomitant]
  4. ZELNORM [Concomitant]
  5. BENADRYL [Concomitant]

REACTIONS (1)
  - RASH MACULAR [None]
